FAERS Safety Report 7763474-4 (Version None)
Quarter: 2011Q3

REPORT INFORMATION
  Report Type: 
  Country: None (occurrence: None)
  Receive Date: 20110920
  Receipt Date: 20110917
  Transmission Date: 20111222
  Serious: Yes (Death)
  Sender: FDA-Public Use
  Company Number: BR-PFIZER INC-2011221672

PATIENT
  Age: 24 Year
  Sex: Male

DRUGS (2)
  1. APRAZ [Suspect]
     Dosage: ONE TABLET
     Dates: start: 20110912
  2. ALPRAZOLAM [Suspect]
     Dosage: 0.5 MG, UNK
     Route: 048
     Dates: start: 20110913

REACTIONS (1)
  - DEATH [None]
